FAERS Safety Report 17137158 (Version 1)
Quarter: 2019Q4

REPORT INFORMATION
  Report Type: Spontaneous
  Country: SI (occurrence: SI)
  Receive Date: 20191210
  Receipt Date: 20191210
  Transmission Date: 20200122
  Serious: Yes (Other)
  Sender: FDA-Public Use
  Company Number: SI-BAUSCH-BL-2019-064154

PATIENT
  Age: 6 Decade
  Sex: Female

DRUGS (10)
  1. VELCADE [Suspect]
     Active Substance: BORTEZOMIB
     Indication: PLASMA CELL MYELOMA
     Dosage: DOSE: 1 (UNIT UNSPECIFIED) (1X PER WEEK)
     Route: 065
     Dates: start: 2017
  2. VELCADE [Suspect]
     Active Substance: BORTEZOMIB
     Route: 065
     Dates: start: 20130115, end: 201305
  3. VELCADE [Suspect]
     Active Substance: BORTEZOMIB
     Route: 065
     Dates: start: 20121206
  4. DEXAMETHASONE. [Suspect]
     Active Substance: DEXAMETHASONE
     Dosage: DOSE: 1 (UNIT UNSPECIFIED)
     Route: 065
     Dates: start: 2018
  5. DEXAMETHASONE. [Suspect]
     Active Substance: DEXAMETHASONE
     Route: 065
     Dates: start: 20121206
  6. DEXAMETHASONE. [Suspect]
     Active Substance: DEXAMETHASONE
     Indication: PLASMA CELL MYELOMA
     Dosage: DOSE: 2 (UNIT UNSPECIFIED) (2 PER WEEK)
     Route: 065
     Dates: start: 201610
  7. VELCADE [Suspect]
     Active Substance: BORTEZOMIB
     Dosage: DOSE: (2 UNIT UNSPECIFIED) (2X PER WEEK)
     Route: 065
     Dates: start: 201610
  8. DEXAMETHASONE. [Suspect]
     Active Substance: DEXAMETHASONE
     Route: 065
     Dates: start: 20130115, end: 201305
  9. VELCADE [Suspect]
     Active Substance: BORTEZOMIB
     Dosage: DOSE: 1 (UNIT UNSPECIFIED)  (1X PER WEEK)
     Route: 065
     Dates: start: 2018
  10. DEXAMETHASONE. [Suspect]
     Active Substance: DEXAMETHASONE
     Dosage: DOSE: 1 (UNIT UNSPECIFIED) (1X PER WEEK)
     Route: 065
     Dates: start: 2017

REACTIONS (7)
  - Plasma cell myeloma [Unknown]
  - Hypotension [Unknown]
  - Exposure to communicable disease [Unknown]
  - Pancytopenia [Unknown]
  - Infection [Unknown]
  - Neuralgia [Unknown]
  - Diarrhoea [Unknown]

NARRATIVE: CASE EVENT DATE: 2014
